FAERS Safety Report 5680637-2 (Version None)
Quarter: 2008Q1

REPORT INFORMATION
  Report Type: 
  Country: None (occurrence: None)
  Receive Date: 20080326
  Receipt Date: 20080221
  Transmission Date: 20080703
  Serious: No
  Sender: FDA-Public Use
  Company Number: A0701678A

PATIENT
  Age: 73 Year
  Sex: Female

DRUGS (6)
  1. FLOVENT [Suspect]
     Indication: ASTHMA
     Dosage: 2PUFF TWICE PER DAY
     Route: 055
     Dates: start: 20071201
  2. SYNTHROID [Concomitant]
  3. PLAQUENIL [Concomitant]
  4. CELEBREX [Concomitant]
  5. LYRICA [Concomitant]
  6. VITAMINS [Concomitant]

REACTIONS (2)
  - DRUG INEFFECTIVE [None]
  - PHARMACEUTICAL PRODUCT COMPLAINT [None]
